FAERS Safety Report 5690716-1 (Version None)
Quarter: 2008Q2

REPORT INFORMATION
  Report Type: 
  Country: None (occurrence: None)
  Receive Date: 20080401
  Receipt Date: 20080401
  Transmission Date: 20081010
  Serious: Yes (Other)
  Sender: FDA-Public Use
  Company Number: A0718559A

PATIENT
  Age: 43 Year
  Sex: Female
  Weight: 86 kg

DRUGS (1)
  1. ALLI [Suspect]
     Dates: start: 20070601, end: 20080328

REACTIONS (3)
  - ANAL HAEMORRHAGE [None]
  - DIZZINESS [None]
  - RECTAL HAEMORRHAGE [None]
